FAERS Safety Report 17670880 (Version 1)
Quarter: 2020Q2

REPORT INFORMATION
  Report Type: Spontaneous
  Country: US (occurrence: US)
  Receive Date: 20200415
  Receipt Date: 20200415
  Transmission Date: 20200713
  Serious: Yes (Life-Threatening)
  Sender: FDA-Public Use
  Company Number: None

PATIENT
  Age: 84 Year
  Sex: Male
  Weight: 72.7 kg

DRUGS (3)
  1. OPDIVO [Suspect]
     Active Substance: NIVOLUMAB
     Indication: RENAL CELL CARCINOMA
     Route: 042
     Dates: start: 20200127, end: 20200323
  2. DENOSUMAB [Concomitant]
     Active Substance: DENOSUMAB
     Dates: start: 20190826
  3. PROCRIT [Concomitant]
     Active Substance: ERYTHROPOIETIN
     Dates: start: 20191107

REACTIONS (3)
  - Neutrophilia [None]
  - Chronic obstructive pulmonary disease [None]
  - White blood cell count increased [None]

NARRATIVE: CASE EVENT DATE: 20200407
